FAERS Safety Report 9642819 (Version 1)
Quarter: 2013Q4

REPORT INFORMATION
  Report Type: Spontaneous
  Country: NG (occurrence: NG)
  Receive Date: 20131024
  Receipt Date: 20131024
  Transmission Date: 20140711
  Serious: Yes (Other)
  Sender: FDA-Public Use
  Company Number: NG-PFIZER INC-2013301899

PATIENT
  Age: 27 Year
  Sex: Male

DRUGS (2)
  1. HALOPERIDOL [Suspect]
     Indication: DELUSION
     Dosage: UNK
  2. DIAZEPAM [Suspect]
     Indication: DELUSION
     Dosage: UNK

REACTIONS (9)
  - Dystonia [Recovered/Resolved]
  - Opisthotonus [Recovered/Resolved]
  - Dyskinesia [Recovered/Resolved]
  - Cyanosis [Recovered/Resolved]
  - Dyspnoea [Recovered/Resolved]
  - Communication disorder [Unknown]
  - Torticollis [Recovered/Resolved]
  - Hyperhidrosis [Unknown]
  - Dysphagia [Recovered/Resolved]
